FAERS Safety Report 12420745 (Version 1)
Quarter: 2016Q2

REPORT INFORMATION
  Report Type: Spontaneous
  Country: JP (occurrence: JP)
  Receive Date: 20160531
  Receipt Date: 20160531
  Transmission Date: 20160815
  Serious: Yes (Other)
  Sender: FDA-Public Use
  Company Number: JP-PFIZER INC-2016280008

PATIENT
  Age: 41 Year
  Sex: Female
  Weight: 62 kg

DRUGS (17)
  1. NOREPINEPHRINE [Concomitant]
     Active Substance: NOREPINEPHRINE\NOREPINEPHRINE BITARTRATE
     Dosage: 0.1 MG, UNK
  2. PHENYLEPHRINE [Concomitant]
     Active Substance: PHENYLEPHRINE\PHENYLEPHRINE HYDROCHLORIDE
     Dosage: 1 MG, UNK
     Route: 042
  3. VECURONIUM [Concomitant]
     Active Substance: VECURONIUM BROMIDE
     Dosage: 4 UG/ML, UNK
  4. PROPOFOL. [Suspect]
     Active Substance: PROPOFOL
     Indication: ANAESTHESIA
     Dosage: 100 MG
     Route: 041
  5. PROPOFOL. [Suspect]
     Active Substance: PROPOFOL
     Dosage: 130 MG
  6. ROCURONIUM [Concomitant]
     Active Substance: ROCURONIUM BROMIDE
     Indication: ANAESTHESIA
     Dosage: 50 MG, UNK
  7. ROCURONIUM [Concomitant]
     Active Substance: ROCURONIUM BROMIDE
     Dosage: 10 UG/ML, UNK
  8. ADRENALINE [Concomitant]
     Active Substance: EPINEPHRINE
     Dosage: 0.1 UG/KG/MIN
  9. SEVOFLURANE. [Concomitant]
     Active Substance: SEVOFLURANE
     Indication: ANAESTHESIA
     Dosage: 5 %, UNK
  10. DESFLURANE. [Concomitant]
     Active Substance: DESFLURANE
     Indication: ANAESTHESIA
     Dosage: 6 %, UNK
  11. REMIFENTANIL [Concomitant]
     Active Substance: REMIFENTANIL
     Indication: ANAESTHESIA
     Dosage: (0.3 UG/KG/MIN)
  12. REMIFENTANIL [Concomitant]
     Active Substance: REMIFENTANIL
     Dosage: 120 UG, UNK
  13. REMIFENTANIL [Concomitant]
     Active Substance: REMIFENTANIL
     Dosage: (0.2 TO 0.3 ?G/KG/MIN )
  14. ADRENALINE [Concomitant]
     Active Substance: EPINEPHRINE
     Dosage: 1 MG, UNK
     Route: 042
  15. SUXAMETHONIUM [Concomitant]
     Active Substance: SUCCINYLCHOLINE
     Indication: ANAESTHESIA
     Dosage: UNK
  16. ADRENALINE [Concomitant]
     Active Substance: EPINEPHRINE
     Dosage: 1 MG, UNK
  17. RINGER ACETATE [Concomitant]
     Dosage: UNK

REACTIONS (3)
  - Hypotension [Unknown]
  - Overdose [Unknown]
  - Shock [Unknown]
